FAERS Safety Report 6892519-9 (Version None)
Quarter: 2010Q3

REPORT INFORMATION
  Report Type: 
  Country: None (occurrence: None)
  Receive Date: 20100731
  Receipt Date: 20080625
  Transmission Date: 20110219
  Serious: Yes (Other)
  Sender: FDA-Public Use
  Company Number: US-PFIZER INC-2008040485

PATIENT
  Sex: Male
  Weight: 104 kg

DRUGS (13)
  1. NEURONTIN [Suspect]
     Indication: BURNING SENSATION
     Route: 048
     Dates: start: 20051201
  2. NEURONTIN [Suspect]
     Indication: HYPOAESTHESIA
  3. NEURONTIN [Suspect]
     Indication: NEUROPATHY PERIPHERAL
  4. DIOVAN [Concomitant]
  5. LIPITOR [Concomitant]
  6. ACETYLSALICYLIC ACID SRT [Concomitant]
  7. NASONEX [Concomitant]
  8. PREVACID [Concomitant]
  9. RANITIDINE [Concomitant]
  10. FLUOXETINE [Concomitant]
  11. COMBIVENT [Concomitant]
  12. HYDROCHLOROTHIAZIDE [Concomitant]
  13. VITAMIN D [Concomitant]

REACTIONS (5)
  - BURNING SENSATION [None]
  - DECREASED ACTIVITY [None]
  - DRUG INEFFECTIVE [None]
  - HYPOAESTHESIA [None]
  - WEIGHT INCREASED [None]
